FAERS Safety Report 21028425 (Version 1)
Quarter: 2022Q2

REPORT INFORMATION
  Report Type: Spontaneous
  Country: US (occurrence: US)
  Receive Date: 20220630
  Receipt Date: 20220630
  Transmission Date: 20220720
  Serious: No
  Sender: FDA-Public Use
  Company Number: US-PAIPHARMA-2022-US-006013

PATIENT
  Age: 54 Year
  Sex: Female
  Weight: 48.99 kg

DRUGS (2)
  1. LORAZEPAM [Suspect]
     Active Substance: LORAZEPAM
     Indication: Post-traumatic stress disorder
     Dosage: 0.25 ML 3-4 TIMES PER DAY
     Route: 048
     Dates: start: 202111
  2. GABAPENTIN [Concomitant]
     Active Substance: GABAPENTIN
     Dosage: USED AS NEEDED, ONE TO TWO TIMES WEEKLY

REACTIONS (18)
  - Tongue erythema [Unknown]
  - Glossitis [Unknown]
  - Vomiting [Unknown]
  - Vertigo [Unknown]
  - Malaise [Unknown]
  - Dyspepsia [Unknown]
  - Throat irritation [Unknown]
  - Stomatitis [Unknown]
  - Throat irritation [Unknown]
  - Tongue discomfort [Unknown]
  - Headache [Unknown]
  - Diarrhoea [Unknown]
  - Tinnitus [Unknown]
  - Abdominal discomfort [Unknown]
  - Nausea [Unknown]
  - Abdominal distension [Unknown]
  - Flatulence [Unknown]
  - Decreased appetite [Unknown]

NARRATIVE: CASE EVENT DATE: 20211101
